FAERS Safety Report 6039944-6 (Version None)
Quarter: 2009Q1

REPORT INFORMATION
  Report Type: 
  Country: None (occurrence: None)
  Receive Date: 20090116
  Receipt Date: 20071105
  Transmission Date: 20090719
  Serious: Yes (Other)
  Sender: FDA-Public Use
  Company Number: US-BRISTOL-MYERS SQUIBB COMPANY-13939665

PATIENT
  Age: 29 Year
  Sex: Female

DRUGS (3)
  1. ABILIFY [Suspect]
     Indication: BIPOLAR DISORDER
     Dosage: ON 30MG SINCE SEP 2006
     Route: 048
     Dates: start: 20051001
  2. EFFEXOR XR [Suspect]
     Dates: start: 20070101
  3. ARTANE [Concomitant]

REACTIONS (3)
  - GLUCOSE TOLERANCE IMPAIRED [None]
  - HYPERGLYCAEMIA [None]
  - WEIGHT INCREASED [None]
